FAERS Safety Report 13595625 (Version 1)
Quarter: 2017Q2

REPORT INFORMATION
  Report Type: Spontaneous
  Country: US (occurrence: US)
  Receive Date: 20170531
  Receipt Date: 20170531
  Transmission Date: 20170830
  Serious: No
  Sender: FDA-Public Use
  Company Number: US-JNJFOC-20170421920

PATIENT
  Age: 71 Year
  Sex: Male
  Weight: 68.04 kg

DRUGS (2)
  1. MOTRIN IB [Suspect]
     Active Substance: IBUPROFEN
     Route: 048
  2. MOTRIN IB [Suspect]
     Active Substance: IBUPROFEN
     Indication: PAIN PROPHYLAXIS
     Dosage: 4 CAPLETS (800 MG) ONCE
     Route: 048
     Dates: start: 20170419, end: 20170419

REACTIONS (2)
  - Prescribed overdose [Unknown]
  - Expired product administered [Unknown]

NARRATIVE: CASE EVENT DATE: 20170419
